FAERS Safety Report 7911596-7 (Version None)
Quarter: 2011Q4

REPORT INFORMATION
  Report Type: 
  Country: None (occurrence: None)
  Receive Date: 20111114
  Receipt Date: 20111110
  Transmission Date: 20120403
  Serious: No
  Sender: FDA-Public Use
  Company Number: US-TEVA-306796USA

PATIENT
  Sex: Female
  Weight: 101.7 kg

DRUGS (1)
  1. PLAN B ONE-STEP [Suspect]
     Indication: POST COITAL CONTRACEPTION
     Dosage: 1.5 MILLIGRAM;
     Route: 048
     Dates: start: 20111016, end: 20111016

REACTIONS (6)
  - HEADACHE [None]
  - INCREASED APPETITE [None]
  - BREAST TENDERNESS [None]
  - MENSTRUATION IRREGULAR [None]
  - NAUSEA [None]
  - ABDOMINAL PAIN [None]
